FAERS Safety Report 8399249-5 (Version None)
Quarter: 2012Q2

REPORT INFORMATION
  Report Type: 
  Country: None (occurrence: None)
  Receive Date: 20120531
  Receipt Date: 20120523
  Transmission Date: 20120825
  Serious: Yes (Other)
  Sender: FDA-Public Use
  Company Number: US-GLAXOSMITHKLINE-A0979550A

PATIENT
  Sex: Female

DRUGS (2)
  1. WELLBUTRIN [Suspect]
     Indication: PRODUCT USED FOR UNKNOWN INDICATION
     Route: 065
  2. NICOTINE [Suspect]
     Indication: EX-TOBACCO USER
     Route: 062

REACTIONS (4)
  - RASH [None]
  - CONVULSION [None]
  - NAUSEA [None]
  - VOMITING [None]
